FAERS Safety Report 22370513 (Version 1)
Quarter: 2023Q2

REPORT INFORMATION
  Report Type: Report from Study
  Country: BR (occurrence: BR)
  Receive Date: 20230526
  Receipt Date: 20230526
  Transmission Date: 20230721
  Serious: Yes (Other)
  Sender: FDA-Public Use
  Company Number: BR-JNJFOC-20230548010

PATIENT
  Age: 58 Year
  Sex: Female
  Weight: 68 kg

DRUGS (2)
  1. INFLIXIMAB [Suspect]
     Active Substance: INFLIXIMAB
     Indication: Ankylosing spondylitis
     Dosage: END OF 2019 OR BEGINNING OF 2020, 2 VIAL EACH 60 DAYS
     Route: 041
  2. GABAPENTIN [Concomitant]
     Active Substance: GABAPENTIN
     Indication: Ankylosing spondylitis
     Dosage: 2 TABLETS
     Route: 048

REACTIONS (5)
  - Eye inflammation [Unknown]
  - Weight increased [Unknown]
  - Influenza [Unknown]
  - Pain [Unknown]
  - Off label use [Unknown]

NARRATIVE: CASE EVENT DATE: 20230101
